FAERS Safety Report 9837411 (Version 1)
Quarter: 2014Q1

REPORT INFORMATION
  Report Type: Spontaneous
  Country: US (occurrence: US)
  Receive Date: 20140123
  Receipt Date: 20140123
  Transmission Date: 20141002
  Serious: No
  Sender: FDA-Public Use
  Company Number: US-PFIZER INC-2014017194

PATIENT
  Age: 6 Month
  Sex: Female
  Weight: 7.26 kg

DRUGS (3)
  1. INFANT ADVIL CONCENTRATED DROPS [Suspect]
     Indication: TEETHING
     Dosage: UNK, DAILY
     Dates: start: 20140115
  2. POTASSIUM [Concomitant]
     Dosage: UNK
     Dates: start: 20131029
  3. TYLENOL [Concomitant]
     Indication: TEETHING
     Dosage: 2.25 MG, UNK
     Dates: start: 2013

REACTIONS (4)
  - Off label use [Unknown]
  - Crying [Recovered/Resolved]
  - Abdominal pain upper [Recovered/Resolved]
  - Dermatitis diaper [Not Recovered/Not Resolved]
